FAERS Safety Report 23593698 (Version 2)
Quarter: 2024Q2

REPORT INFORMATION
  Report Type: Spontaneous
  Country: JP (occurrence: JP)
  Receive Date: 20240304
  Receipt Date: 20240528
  Transmission Date: 20240715
  Serious: Yes (Hospitalization, Other)
  Sender: FDA-Public Use
  Company Number: JP-GSK-JP2024JPN026614

PATIENT

DRUGS (16)
  1. BENLYSTA [Suspect]
     Active Substance: BELIMUMAB
     Indication: Systemic lupus erythematosus
     Dosage: 200 MG, WE
     Route: 058
     Dates: start: 20191025, end: 20200405
  2. BENLYSTA [Suspect]
     Active Substance: BELIMUMAB
     Dosage: 200 MG, WE
     Route: 058
     Dates: start: 20200412, end: 20201011
  3. PROGRAF [Suspect]
     Active Substance: TACROLIMUS
     Indication: Systemic lupus erythematosus
     Dosage: UNK
  4. BETAMETHASONE [Suspect]
     Active Substance: BETAMETHASONE\BETAMETHASONE DIPROPIONATE
     Dosage: UNK
  5. PREDONINE [Concomitant]
     Active Substance: PREDNISOLONE
     Indication: Systemic lupus erythematosus
     Dosage: 10 MG, QD
     Route: 048
     Dates: start: 20191025, end: 20191129
  6. PREDONINE [Concomitant]
     Active Substance: PREDNISOLONE
     Dosage: 9 MG, QD
     Route: 048
     Dates: start: 20191130, end: 20200117
  7. PREDONINE [Concomitant]
     Active Substance: PREDNISOLONE
     Dosage: 8 MG, QD
     Route: 048
     Dates: start: 20200118, end: 20200407
  8. PREDONINE [Concomitant]
     Active Substance: PREDNISOLONE
     Dosage: 30 MG, QD
     Route: 048
     Dates: start: 20200408, end: 20200414
  9. PREDONINE [Concomitant]
     Active Substance: PREDNISOLONE
     Dosage: 20 MG, QD
     Route: 048
     Dates: start: 20200415, end: 20200508
  10. PREDONINE [Concomitant]
     Active Substance: PREDNISOLONE
     Dosage: 18 MG, QD
     Route: 048
     Dates: start: 20200509, end: 20200619
  11. PREDONINE [Concomitant]
     Active Substance: PREDNISOLONE
     Dosage: 17 MG, QD
     Route: 048
     Dates: start: 20200620, end: 20200710
  12. PREDONINE [Concomitant]
     Active Substance: PREDNISOLONE
     Dosage: 16 MG, QD
     Route: 048
     Dates: start: 20200711, end: 20200731
  13. PREDONINE [Concomitant]
     Active Substance: PREDNISOLONE
     Dosage: 15 MG, QD
     Route: 048
     Dates: start: 20200801, end: 20200904
  14. PREDONINE [Concomitant]
     Active Substance: PREDNISOLONE
     Dosage: 14 MG, QD
     Route: 048
     Dates: start: 20200905, end: 20201002
  15. PREDONINE [Concomitant]
     Active Substance: PREDNISOLONE
     Dosage: 13 MG, QD
     Route: 048
     Dates: start: 20201003
  16. SAPHNELO [Concomitant]
     Active Substance: ANIFROLUMAB\ANIFROLUMAB-FNIA
     Dosage: UNK
     Dates: start: 202208

REACTIONS (2)
  - Pancreas infection [Recovered/Resolved]
  - Walled-off pancreatic necrosis [Recovered/Resolved]

NARRATIVE: CASE EVENT DATE: 20221019
